FAERS Safety Report 4744171-6 (Version None)
Quarter: 2005Q3

REPORT INFORMATION
  Report Type: 
  Country: None (occurrence: None)
  Receive Date: 20050809
  Receipt Date: 20050802
  Transmission Date: 20060218
  Serious: Yes (Death, Hospitalization)
  Sender: FDA-Public Use
  Company Number: 2005US001037

PATIENT
  Age: 56 Year
  Sex: Male

DRUGS (10)
  1. PROGRAF [Suspect]
     Indication: PROPHYLAXIS AGAINST TRANSPLANT REJECTION
  2. MYCOPHENOLATE MFOETIL (MYCOPHENOLATE MOFETIL) [Concomitant]
  3. PREDNISONE [Concomitant]
  4. VORICONAZOLE  (VORICONAZOLE) [Concomitant]
  5. VALGANCICLOVIR (VALGANCICLOVIR) [Concomitant]
  6. DAPSONE [Concomitant]
  7. EPOGEN [Concomitant]
  8. AMLODIPINE [Concomitant]
  9. LANTUS [Concomitant]
  10. SIMVASTATIN [Concomitant]

REACTIONS (3)
  - COMA [None]
  - ENCEPHALITIS VIRAL [None]
  - WEST NILE VIRAL INFECTION [None]
